FAERS Safety Report 14614030 (Version 1)
Quarter: 2018Q1

REPORT INFORMATION
  Report Type: Other
  Country: DK (occurrence: DK)
  Receive Date: 20180308
  Receipt Date: 20180308
  Transmission Date: 20180509
  Serious: Yes (Hospitalization, Other)
  Sender: FDA-Public Use
  Company Number: DK-SEATTLE GENETICS-2018SGN00460

PATIENT
  Age: 63 Year
  Sex: Female
  Weight: 55 kg

DRUGS (2)
  1. ADCETRIS [Suspect]
     Active Substance: BRENTUXIMAB VEDOTIN
     Indication: HODGKIN^S DISEASE RECURRENT
     Dosage: 56 MG, UNK
     Route: 042
     Dates: start: 20170918, end: 20171206
  2. ACICLOVIR [Concomitant]
     Active Substance: ACYCLOVIR
     Indication: VARICELLA ZOSTER VIRUS INFECTION
     Dosage: 400 MG, QD
     Route: 048
     Dates: start: 20170710

REACTIONS (1)
  - Pneumocystis jirovecii infection [None]

NARRATIVE: CASE EVENT DATE: 20171124
